FAERS Safety Report 12094923 (Version 1)
Quarter: 2016Q1

REPORT INFORMATION
  Report Type: Spontaneous
  Country: IT (occurrence: IT)
  Receive Date: 20160219
  Receipt Date: 20160219
  Transmission Date: 20160526
  Serious: Yes (Death, Other)
  Sender: FDA-Public Use
  Company Number: PHHY2016IT021063

PATIENT
  Age: 12 Year
  Sex: Female

DRUGS (2)
  1. CICLOSPORIN [Suspect]
     Active Substance: CYCLOSPORINE
     Indication: PROPHYLAXIS AGAINST GRAFT VERSUS HOST DISEASE
  2. CICLOSPORIN [Suspect]
     Active Substance: CYCLOSPORINE
     Indication: STEM CELL TRANSPLANT
     Dosage: 3 MG/KG, QD
     Route: 065

REACTIONS (6)
  - Vision blurred [Unknown]
  - Acute lymphocytic leukaemia recurrent [Fatal]
  - Acute graft versus host disease in skin [Unknown]
  - Graft versus host disease in liver [Unknown]
  - Posterior reversible encephalopathy syndrome [Unknown]
  - Generalised tonic-clonic seizure [Recovered/Resolved]
